FAERS Safety Report 8095563-1 (Version None)
Quarter: 2012Q1

REPORT INFORMATION
  Report Type: 
  Country: None (occurrence: None)
  Receive Date: 20120131
  Receipt Date: 20120126
  Transmission Date: 20120608
  Serious: Yes (Hospitalization)
  Sender: FDA-Public Use
  Company Number: DE-PFIZER INC-2009235682

PATIENT
  Age: 69 Year
  Sex: Female
  Weight: 59 kg

DRUGS (4)
  1. HALOPERIDOL [Suspect]
     Indication: KORSAKOFF'S SYNDROME
     Dosage: 10 MG, 1X/DAY
     Route: 048
     Dates: end: 20090313
  2. RAMIPRIL [Suspect]
     Indication: HYPERTENSION
     Dosage: 1X5 MG AND 1X2.5 MG
     Route: 048
     Dates: end: 20090316
  3. METAMIZOLE [Concomitant]
     Indication: PAIN
     Dosage: UNK
     Dates: end: 20090311
  4. DIPIPERON [Suspect]
     Indication: KORSAKOFF'S SYNDROME
     Dosage: 40 MG, 3X/DAY
     Route: 048
     Dates: start: 20090315, end: 20090316

REACTIONS (3)
  - ANGINA PECTORIS [None]
  - HYPONATRAEMIA [None]
  - PRODUCTIVE COUGH [None]
